FAERS Safety Report 8746327 (Version 2)
Quarter: 2013Q1

REPORT INFORMATION
  Report Type: Spontaneous
  Country: BR (occurrence: BR)
  Receive Date: 20120827
  Receipt Date: 20130221
  Transmission Date: 20140127
  Serious: Yes (Other)
  Sender: FDA-Public Use
  Company Number: PHHY2012BR073135

PATIENT
  Sex: Female
  Weight: 43 kg

DRUGS (1)
  1. FORASEQ [Suspect]
     Indication: BRONCHIECTASIS
     Dosage: 1 DF, BID

REACTIONS (3)
  - Bronchospasm [Recovered/Resolved]
  - Increased bronchial secretion [Recovered/Resolved]
  - Cough [Recovered/Resolved]
